FAERS Safety Report 22267244 (Version 1)
Quarter: 2023Q2

REPORT INFORMATION
  Report Type: Spontaneous
  Country: CN (occurrence: None)
  Receive Date: 20230428
  Receipt Date: 20230428
  Transmission Date: 20230722
  Serious: Yes (Hospitalization)
  Sender: FDA-Public Use
  Company Number: CN-Eisai Medical Research-EC-2023-139139

PATIENT
  Age: 79 Year
  Sex: Female

DRUGS (2)
  1. LENVATINIB [Suspect]
     Active Substance: LENVATINIB
     Indication: Pancreatic carcinoma
     Route: 048
     Dates: start: 202208, end: 202210
  2. ICARITIN [Concomitant]
     Indication: Pancreatic carcinoma
     Dosage: (DOSE UNKNOWN) 3 TABLETS/TWICE A DAY.
     Route: 048
     Dates: start: 202208, end: 202210

REACTIONS (1)
  - Pancreatitis acute [Unknown]

NARRATIVE: CASE EVENT DATE: 20220926
